FAERS Safety Report 9153799 (Version 1)
Quarter: 2013Q1

REPORT INFORMATION
  Report Type: Spontaneous
  Country: US (occurrence: None)
  Receive Date: 20130306
  Receipt Date: 20130306
  Transmission Date: 20140127
  Serious: Yes (Hospitalization)
  Sender: FDA-Public Use
  Company Number: None

PATIENT
  Sex: Male
  Weight: 110.5 kg

DRUGS (5)
  1. DOXORUBICIN HYDROCHLORIDE [Suspect]
  2. ETOPOSIDE (VP-16) [Suspect]
  3. PREDNISONE [Suspect]
  4. RITUXIMAB (MOAB C2B8 ANTI CD20, CHIMERIC) [Suspect]
  5. VINCRISTINE SULFATE [Suspect]

REACTIONS (6)
  - Pleural effusion [None]
  - Atelectasis [None]
  - Mitral valve sclerosis [None]
  - Aortic valve sclerosis [None]
  - Diastolic dysfunction [None]
  - Left atrial dilatation [None]
